FAERS Safety Report 21496652 (Version 1)
Quarter: 2022Q4

REPORT INFORMATION
  Report Type: Spontaneous
  Country: DK (occurrence: DK)
  Receive Date: 20221022
  Receipt Date: 20221022
  Transmission Date: 20230112
  Serious: Yes (Other)
  Sender: FDA-Public Use
  Company Number: None

PATIENT
  Age: 42 Year
  Sex: Male

DRUGS (1)
  1. CLOZAPINE [Suspect]
     Active Substance: CLOZAPINE
     Indication: Schizophrenia
     Dosage: DOSAGE: UNKNOWN, STRENGTH: UNKNOWN
     Route: 065

REACTIONS (10)
  - Hypercholesterolaemia [Unknown]
  - Insomnia [Unknown]
  - Palpitations [Unknown]
  - Anxiety [Unknown]
  - Salivary hypersecretion [Unknown]
  - Depression [Unknown]
  - Diabetes mellitus [Unknown]
  - Restlessness [Unknown]
  - Headache [Unknown]
  - Paraesthesia [Unknown]
